FAERS Safety Report 23455605 (Version 1)
Quarter: 2024Q1

REPORT INFORMATION
  Report Type: Spontaneous
  Country: US (occurrence: US)
  Receive Date: 20240130
  Receipt Date: 20240130
  Transmission Date: 20240410
  Serious: No
  Sender: FDA-Public Use
  Company Number: US-SA-SAC20240127000243

PATIENT
  Age: 89 Year
  Sex: Female
  Weight: 72.12 kg

DRUGS (1)
  1. DUPIXENT [Suspect]
     Active Substance: DUPILUMAB
     Indication: Asthma
     Dosage: DOSE AND ROUTE: - 300 MG SUBCUTANEOUSLY FREQUENCY: - EVERY 2 WEEKS
     Route: 058
     Dates: start: 20230630

REACTIONS (1)
  - Myalgia [Unknown]

NARRATIVE: CASE EVENT DATE: 20230101
